FAERS Safety Report 4716965-4 (Version None)
Quarter: 2005Q3

REPORT INFORMATION
  Report Type: 
  Country: None (occurrence: None)
  Receive Date: 20050714
  Receipt Date: 20050706
  Transmission Date: 20060218
  Serious: Yes (Death)
  Sender: FDA-Public Use
  Company Number: 163-20785-04080523

PATIENT
  Age: 40 Year
  Sex: Male
  Weight: 132.4 kg

DRUGS (10)
  1. THALOMID [Suspect]
     Indication: MALIGNANT MELANOMA
     Dosage: SEE IMAGE, ORAL
     Route: 048
     Dates: start: 20040720, end: 20040802
  2. THALOMID [Suspect]
     Indication: MALIGNANT MELANOMA
     Dosage: SEE IMAGE, ORAL
     Route: 048
     Dates: start: 20040803, end: 20040814
  3. TEMOZOLOMIDE (TEMOZOLOMIDE) [Suspect]
     Indication: MALIGNANT MELANOMA
     Dosage: 75 MG/M^2 FOR 6 WEEKS, QD, ORAL
     Route: 048
     Dates: start: 20040720, end: 20040814
  4. DECADRON [Concomitant]
  5. GEMFIBROZIL [Concomitant]
  6. IRBESARTAN [Concomitant]
  7. TRIAMTERENE.HYDROCHLOROTHIAZIDE (DYAZIDE) [Concomitant]
  8. EZETIMIBE (EZETIMIBE) [Concomitant]
  9. FLUOXETINE HCL (FLUOXETINE HYDROCHLORIDE) [Concomitant]
  10. LORAZEPAM [Concomitant]

REACTIONS (16)
  - ARRHYTHMIA [None]
  - BRAIN HERNIATION [None]
  - CARDIOVASCULAR DISORDER [None]
  - CEREBRAL DISORDER [None]
  - DYSKINESIA [None]
  - EXTRAPYRAMIDAL DISORDER [None]
  - FEELING ABNORMAL [None]
  - HAEMORRHAGE INTRACRANIAL [None]
  - HEADACHE [None]
  - LYMPHOPENIA [None]
  - MYOCARDIAL INFARCTION [None]
  - OEDEMA PERIPHERAL [None]
  - PULMONARY EMBOLISM [None]
  - RESTLESSNESS [None]
  - SUDDEN DEATH [None]
  - SYNCOPE [None]
